FAERS Safety Report 8577063-5 (Version None)
Quarter: 2012Q3

REPORT INFORMATION
  Report Type: 
  Country: None (occurrence: None)
  Receive Date: 20120807
  Receipt Date: 20120802
  Transmission Date: 20120928
  Serious: Yes (Hospitalization)
  Sender: FDA-Public Use
  Company Number: BR-009507513-1208BRA002156

PATIENT

DRUGS (3)
  1. INTERFERON (UNSPECIFIED) [Concomitant]
     Indication: HEPATITIS C
     Dosage: 28 MCG, QW
     Dates: start: 20100101
  2. VICTRELIS [Suspect]
     Indication: HEPATITIS C
     Dosage: UNK
     Route: 048
     Dates: start: 20120601, end: 20120706
  3. RIBAVIRIN [Suspect]
     Indication: HEPATITIS C
     Dosage: 250 MG, BID
     Dates: start: 20100101

REACTIONS (4)
  - ABDOMINAL DISTENSION [None]
  - BACTERIAL INFECTION [None]
  - GASTROINTESTINAL INFECTION [None]
  - OEDEMA PERIPHERAL [None]
